FAERS Safety Report 11643501 (Version 2)
Quarter: 2015Q4

REPORT INFORMATION
  Report Type: Spontaneous
  Country: US (occurrence: US)
  Receive Date: 20151020
  Receipt Date: 20151203
  Transmission Date: 20160304
  Serious: Yes (Other)
  Sender: FDA-Public Use
  Company Number: US-ASTELLAS-2015US038315

PATIENT
  Age: 40 Year
  Sex: Female

DRUGS (1)
  1. PROGRAF [Suspect]
     Active Substance: TACROLIMUS\TACROLIMUS ANHYDROUS
     Indication: RENAL TRANSPLANT
     Route: 048

REACTIONS (2)
  - Treatment noncompliance [Unknown]
  - Kidney transplant rejection [Unknown]

NARRATIVE: CASE EVENT DATE: 201308
